FAERS Safety Report 7826068-8 (Version None)
Quarter: 2011Q4

REPORT INFORMATION
  Report Type: 
  Country: None (occurrence: None)
  Receive Date: 20111019
  Receipt Date: 20111010
  Transmission Date: 20120403
  Serious: Yes (Hospitalization)
  Sender: FDA-Public Use
  Company Number: US-ASTRAZENECA-2011SE60994

PATIENT
  Age: 63 Year
  Sex: Female

DRUGS (5)
  1. ARIMIDEX [Concomitant]
     Route: 048
  2. SEROQUEL [Concomitant]
     Route: 048
  3. PULMICORT FLEXHALER [Concomitant]
     Route: 055
  4. NEXIUM [Suspect]
     Route: 048
  5. CRESTOR [Concomitant]
     Route: 048

REACTIONS (2)
  - DYSPEPSIA [None]
  - DRUG DOSE OMISSION [None]
